FAERS Safety Report 4862162-1 (Version None)
Quarter: 2005Q4

REPORT INFORMATION
  Report Type: 
  Country: None (occurrence: None)
  Receive Date: 20051201
  Receipt Date: 20050813
  Transmission Date: 20060501
  Serious: No
  Sender: FDA-Public Use
  Company Number: 2005PV001188

PATIENT
  Age: 53 Year
  Sex: Female
  Weight: 120.2032 kg

DRUGS (7)
  1. BYETTA [Suspect]
     Indication: DIABETES MELLITUS NON-INSULIN-DEPENDENT
     Dosage: 5 MCG; BID; SC
     Route: 058
     Dates: start: 20050811, end: 20050812
  2. BYETTA [Suspect]
     Indication: DIABETES MELLITUS NON-INSULIN-DEPENDENT
     Dosage: 5 MCG; BID; SC
     Route: 058
     Dates: start: 20050812
  3. GLUCOVANCE [Concomitant]
  4. MULTIVITAMIN [Concomitant]
  5. FISH OIL [Concomitant]
  6. FENUGREEK [Concomitant]
  7. FLAXSEED OIL [Concomitant]

REACTIONS (3)
  - FEELING HOT [None]
  - HEADACHE [None]
  - HYPERHIDROSIS [None]
